FAERS Safety Report 9061562 (Version 1)
Quarter: 2013Q1

REPORT INFORMATION
  Report Type: Spontaneous
  Country: US (occurrence: None)
  Receive Date: 20130122
  Receipt Date: 20130122
  Transmission Date: 20140127
  Serious: Yes (Death)
  Sender: FDA-Public Use
  Company Number: 1552737

PATIENT
  Age: 20 Year
  Sex: Male

DRUGS (3)
  1. MORPHINE SULPHATE [Suspect]
  2. CODEINE [Suspect]
  3. METHAMPHETAMINE [Suspect]

REACTIONS (2)
  - Intentional drug misuse [None]
  - Poisoning [None]
